FAERS Safety Report 15749754 (Version 1)
Quarter: 2018Q4

REPORT INFORMATION
  Report Type: Spontaneous
  Country: GR (occurrence: GR)
  Receive Date: 20181221
  Receipt Date: 20181221
  Transmission Date: 20190205
  Serious: Yes (Life-Threatening, Hospitalization, Other)
  Sender: FDA-Public Use
  Company Number: GR-REGULIS-2060472

PATIENT
  Age: 44 Year
  Sex: Female

DRUGS (6)
  1. PROPOFOL. [Concomitant]
     Active Substance: PROPOFOL
     Route: 065
  2. REMIFENTANIL HYDROCHLORIDE. [Concomitant]
     Active Substance: REMIFENTANIL HYDROCHLORIDE
     Route: 065
  3. MIDAZOLAM [Concomitant]
     Active Substance: MIDAZOLAM HYDROCHLORIDE
     Route: 065
  4. METHYLENE BLUE. [Suspect]
     Active Substance: METHYLENE BLUE
     Indication: PRODUCT USED FOR UNKNOWN INDICATION
     Route: 065
  5. PARACETAMOL [Concomitant]
     Active Substance: ACETAMINOPHEN
     Route: 065
  6. FENTANYL CITRATE. [Suspect]
     Active Substance: FENTANYL CITRATE
     Route: 065

REACTIONS (1)
  - Serotonin syndrome [Unknown]
